FAERS Safety Report 6626638-9 (Version None)
Quarter: 2010Q1

REPORT INFORMATION
  Report Type: 
  Country: None (occurrence: None)
  Receive Date: 20100309
  Receipt Date: 20100309
  Transmission Date: 20100710
  Serious: Yes (Hospitalization)
  Sender: FDA-Public Use
  Company Number: None

PATIENT
  Sex: Female
  Weight: 76.2 kg

DRUGS (6)
  1. CYCLOPHOSPHAMIDE [Suspect]
     Dosage: 1470 MG
  2. DOXORUBICIN HCL [Suspect]
     Dosage: 78.4 MG
  3. ETPOSIDE (VP-16) [Suspect]
     Dosage: 392 MG
  4. PREDNISONE [Suspect]
     Dosage: 1200 MG
  5. RITUXIMAB (MOAB C2B8 ANTI CD20, CHIMERIC) [Suspect]
     Dosage: 735 MG
  6. VINCRISTINE SULFATE [Suspect]
     Dosage: 3.12 MG

REACTIONS (7)
  - BLOOD PRESSURE DECREASED [None]
  - DIARRHOEA [None]
  - HEART RATE INCREASED [None]
  - NAUSEA [None]
  - PYREXIA [None]
  - RESPIRATORY RATE INCREASED [None]
  - VOMITING [None]
